FAERS Safety Report 4431343-3 (Version None)
Quarter: 2004Q3

REPORT INFORMATION
  Report Type: 
  Country: None (occurrence: None)
  Receive Date: 20040823
  Receipt Date: 20040823
  Transmission Date: 20050211
  Serious: Yes (Other)
  Sender: FDA-Public Use
  Company Number: None

PATIENT
  Age: 22 Year
  Sex: Female
  Weight: 63.5036 kg

DRUGS (1)
  1. DEPO-PROVERA [Suspect]
     Indication: CONTRACEPTION
     Dosage: EVERY 3 MO OTHER
     Route: 050
     Dates: start: 20000301, end: 20030401

REACTIONS (12)
  - ABNORMAL BEHAVIOUR [None]
  - AGGRESSION [None]
  - CRYING [None]
  - DIZZINESS [None]
  - IMPAIRED WORK ABILITY [None]
  - IRRITABILITY [None]
  - LOSS OF LIBIDO [None]
  - MIGRAINE [None]
  - MOOD ALTERED [None]
  - MORBID THOUGHTS [None]
  - SUICIDAL IDEATION [None]
  - WEIGHT INCREASED [None]
